FAERS Safety Report 5188737-0 (Version None)
Quarter: 2006Q4

REPORT INFORMATION
  Report Type: 
  Country: None (occurrence: None)
  Receive Date: 20061214
  Receipt Date: 20061204
  Transmission Date: 20070319
  Serious: Yes (Other)
  Sender: FDA-Public Use
  Company Number: 2006150286

PATIENT
  Age: 88 Year
  Sex: Male
  Weight: 72.5755 kg

DRUGS (3)
  1. NORVASC [Suspect]
     Indication: BLOOD CHOLESTEROL INCREASED
     Dosage: SEE IMAGE
     Route: 048
     Dates: start: 20010101
  2. VASOTEC [Concomitant]
  3. NEXIUM [Concomitant]

REACTIONS (6)
  - ALANINE AMINOTRANSFERASE INCREASED [None]
  - ASPARTATE AMINOTRANSFERASE INCREASED [None]
  - BLOOD ALKALINE PHOSPHATASE INCREASED [None]
  - BLOOD AMYLASE INCREASED [None]
  - LABORATORY TEST ABNORMAL [None]
  - LIPASE INCREASED [None]
